FAERS Safety Report 8404868-3 (Version None)
Quarter: 2012Q2

REPORT INFORMATION
  Report Type: 
  Country: None (occurrence: None)
  Receive Date: 20120601
  Receipt Date: 20110428
  Transmission Date: 20120825
  Serious: No
  Sender: FDA-Public Use
  Company Number: US-ASTRAZENECA-2011SE25786

PATIENT
  Age: 37 Year
  Sex: Female
  Weight: 63 kg

DRUGS (8)
  1. METOPROLOL SUCCINATE [Suspect]
     Indication: HYPERTENSION
     Route: 048
     Dates: start: 20110101
  2. ATACAND HCT [Suspect]
     Indication: HYPERTENSION
     Dosage: 16/12.5 MILLIGRAMS
     Route: 048
     Dates: start: 20110101
  3. SYNTHROID [Concomitant]
     Indication: HYPOTHYROIDISM
     Route: 048
  4. ANGIOTENSIN [Concomitant]
     Indication: HYPERTENSION
     Route: 048
  5. CRESTOR [Suspect]
     Indication: HYPERCHOLESTEROLAEMIA
     Route: 048
     Dates: start: 20100101
  6. UNKNOWN /ANTIDEPRESSANT [Suspect]
     Indication: DEPRESSION
     Route: 048
     Dates: end: 20110301
  7. METOPROLOL SUCCINATE [Suspect]
     Indication: TACHYCARDIA
     Route: 048
     Dates: start: 20110101
  8. UNKNOWN [Concomitant]
     Indication: BLOOD CALCIUM ABNORMAL
     Route: 048

REACTIONS (3)
  - DEPRESSION [None]
  - TACHYCARDIA [None]
  - HYPERTENSION [None]
